FAERS Safety Report 8352695-8 (Version None)
Quarter: 2012Q2

REPORT INFORMATION
  Report Type: 
  Country: None (occurrence: None)
  Receive Date: 20120511
  Receipt Date: 20111006
  Transmission Date: 20120825
  Serious: No
  Sender: FDA-Public Use
  Company Number: US-GLAXOSMITHKLINE-A0947969A

PATIENT
  Age: 52 Year
  Sex: Female

DRUGS (13)
  1. PROPRANOLOL HYDROCHLORIDE [Suspect]
     Indication: MITRAL VALVE PROLAPSE
     Dosage: 80MG PER DAY
     Route: 048
     Dates: start: 20111001, end: 20111005
  2. PLAQUENIL [Concomitant]
  3. IBUPROFEN [Concomitant]
  4. VITAMIN B-12 [Concomitant]
  5. CYCLOBENZAPRINE [Concomitant]
  6. TRAMADOL HCL [Concomitant]
  7. FUROSEMIDE [Concomitant]
  8. NEXIUM [Concomitant]
  9. POTASSIUM CHLORIDE [Concomitant]
  10. AMLODIPINE BESYLATE [Concomitant]
  11. BENAZEPRIL HYDROCHLORIDE [Concomitant]
  12. VITAMIN D [Concomitant]
  13. AVAPRO [Concomitant]

REACTIONS (7)
  - THERMAL BURN [None]
  - OEDEMA PERIPHERAL [None]
  - SWOLLEN TONGUE [None]
  - LIP SWELLING [None]
  - URTICARIA [None]
  - PRURITUS [None]
  - ERYTHEMA [None]
